FAERS Safety Report 21855820 (Version 1)
Quarter: 2023Q1

REPORT INFORMATION
  Report Type: Report from Study
  Country: US (occurrence: US)
  Receive Date: 20230112
  Receipt Date: 20230112
  Transmission Date: 20230417
  Serious: No
  Sender: FDA-Public Use
  Company Number: US-ABBVIE-4227557

PATIENT
  Sex: Male
  Weight: 112.94 kg

DRUGS (14)
  1. RINVOQ [Suspect]
     Active Substance: UPADACITINIB
     Indication: Illness
     Dosage: FORM STRENGTH: 15 MILLIGRAM
     Route: 048
     Dates: start: 20220924
  2. TRULICITY 1.5 MG/0.5 PEN INJCTR [Concomitant]
     Indication: Product used for unknown indication
  3. ALLEGRA ALLERGY 180 MG TABLET [Concomitant]
     Indication: Product used for unknown indication
  4. PNEUMOVAX 23 25MCG/0.5 SYRINGE [Concomitant]
     Indication: Product used for unknown indication
  5. SPIRIVA RESPIMAT 2.5 MCG MIST INHAL, [Concomitant]
     Indication: Product used for unknown indication
  6. VITAMIN D3 10 MCG CAPSULE [Concomitant]
     Indication: Product used for unknown indication
  7. TESTOSTERONE CYPIONATE [Concomitant]
     Active Substance: TESTOSTERONE CYPIONATE
     Indication: Product used for unknown indication
  8. OMEPRAZOLE 40 MG CAPSULE DR [Concomitant]
     Indication: Product used for unknown indication
  9. FLUAD QUAD 2022-2023, [Concomitant]
     Indication: Product used for unknown indication
  10. LISINOPR IL 10 MG TABLET [Concomitant]
     Indication: Product used for unknown indication
  11. ROSUVASTATIN CALCIUM 10 MG TABLET [Concomitant]
     Indication: Product used for unknown indication
  12. JARDIANCE 10 MG TABLET [Concomitant]
     Indication: Product used for unknown indication
  13. ADVAIR DISKUS 50050 MCG BLST WiDEV, [Concomitant]
     Indication: Product used for unknown indication
  14. SINGULAIR [Concomitant]
     Active Substance: MONTELUKAST SODIUM
     Indication: Product used for unknown indication

REACTIONS (1)
  - Incorrect dose administered [Unknown]

NARRATIVE: CASE EVENT DATE: 20220101
